FAERS Safety Report 17803127 (Version 1)
Quarter: 2020Q2

REPORT INFORMATION
  Report Type: Spontaneous
  Country: PH (occurrence: PH)
  Receive Date: 20200519
  Receipt Date: 20200519
  Transmission Date: 20200714
  Serious: Yes (Death, Life-Threatening, Hospitalization, Other)
  Sender: FDA-Public Use
  Company Number: PH-ACCORD-181753

PATIENT
  Age: 66 Year
  Sex: Male

DRUGS (4)
  1. DOXORUBICIN [Suspect]
     Active Substance: DOXORUBICIN
     Indication: HEPATOCELLULAR CARCINOMA
  2. MITOMYCIN. [Suspect]
     Active Substance: MITOMYCIN
     Indication: HEPATOCELLULAR CARCINOMA
  3. IODINE. [Concomitant]
     Active Substance: IODINE
     Indication: HEPATOCELLULAR CARCINOMA
     Dosage: 10CC
  4. CISPLATIN. [Suspect]
     Active Substance: CISPLATIN
     Indication: HEPATOCELLULAR CARCINOMA

REACTIONS (2)
  - Tumour lysis syndrome [Fatal]
  - Hypotension [Fatal]
